FAERS Safety Report 8461238-X (Version None)
Quarter: 2012Q2

REPORT INFORMATION
  Report Type: 
  Country: None (occurrence: None)
  Receive Date: 20120323
  Receipt Date: 20111129
  Transmission Date: 20120825
  Serious: Yes (Other)
  Sender: FDA-Public Use
  Company Number: 163-21880-11102287

PATIENT
  Age: 70 Year
  Sex: Male

DRUGS (7)
  1. METFFORMIN HYDROCHLORIDE [Concomitant]
  2. VITAMIN B12 [Concomitant]
  3. DEXAMETHASONE [Concomitant]
  4. REVLIMID [Suspect]
     Indication: MULTIPLE MYELOMA
     Dosage: 15 MG, QD X 21 DAYS, PO; 10 MG, QD X 21 DAYS, PO
     Route: 048
     Dates: start: 20110613
  5. REVLIMID [Suspect]
     Indication: MULTIPLE MYELOMA
     Dosage: 15 MG, QD X 21 DAYS, PO; 10 MG, QD X 21 DAYS, PO
     Route: 048
     Dates: start: 20111001
  6. LISINOPRIL [Concomitant]
  7. ASPIRIN [Concomitant]

REACTIONS (2)
  - OEDEMA PERIPHERAL [None]
  - DEEP VEIN THROMBOSIS [None]
